FAERS Safety Report 9987979 (Version 9)
Quarter: 2016Q3

REPORT INFORMATION
  Report Type: Report from Study
  Country: FR (occurrence: FR)
  Receive Date: 20140307
  Receipt Date: 20160902
  Transmission Date: 20161109
  Serious: Yes (Hospitalization)
  Sender: FDA-Public Use
  Company Number: FR-B.I. PHARMACEUTICALS,INC./RIDGEFIELD-2013-BI-25133BI

PATIENT
  Age: 80 Year
  Sex: Male
  Weight: 83 kg

DRUGS (1)
  1. PRADAXA [Suspect]
     Active Substance: DABIGATRAN ETEXILATE MESYLATE
     Indication: ATRIAL FIBRILLATION
     Dosage: DAILY DOSE AND DOSE PER APPLICATION: 300
     Route: 048
     Dates: start: 20130411, end: 20130904

REACTIONS (2)
  - Colorectal cancer [Recovered/Resolved with Sequelae]
  - Intestinal haemorrhage [Recovered/Resolved with Sequelae]

NARRATIVE: CASE EVENT DATE: 20130904
